FAERS Safety Report 9259468 (Version 1)
Quarter: 2013Q2

REPORT INFORMATION
  Report Type: Spontaneous
  Country: US (occurrence: US)
  Receive Date: 20130428
  Receipt Date: 20130428
  Transmission Date: 20140414
  Serious: No
  Sender: FDA-Public Use
  Company Number: US-BAYER-2013-050556

PATIENT
  Age: 70 Year
  Sex: Female
  Weight: 62.59 kg

DRUGS (2)
  1. ALEVE CAPLET [Suspect]
     Indication: BACK PAIN
     Dosage: 1 DF, ONCE
     Route: 048
     Dates: start: 20130412, end: 20130412
  2. ATENOLOL [Concomitant]

REACTIONS (4)
  - Tinnitus [Not Recovered/Not Resolved]
  - Ear congestion [Not Recovered/Not Resolved]
  - Ear congestion [Recovered/Resolved]
  - Tinnitus [Not Recovered/Not Resolved]
